FAERS Safety Report 7391271 (Version 8)
Quarter: 2018Q2

REPORT INFORMATION
  Report Type: Spontaneous
  Country: FI (occurrence: FI)
  Receive Date: 20100518
  Receipt Date: 20180523
  Transmission Date: 20180711
  Serious: Yes (Life-Threatening, Hospitalization, Disabling, Other)
  Sender: FDA-Public Use
  Company Number: FI-JNJFOC-20100505289

PATIENT
  Age: 46 Year
  Sex: Female

DRUGS (11)
  1. REMICADE [Suspect]
     Active Substance: INFLIXIMAB
     Indication: COLITIS ULCERATIVE
     Dosage: TOTAL OF 5 INFUSIONS
     Route: 042
     Dates: start: 20091002
  2. PARACETAMOL [Concomitant]
     Active Substance: ACETAMINOPHEN
     Dosage: 5 GRAMS IN TOTAL
     Dates: start: 201001
  3. SALAZOPYRIN [Concomitant]
     Active Substance: SULFASALAZINE
     Indication: ANKYLOSING SPONDYLITIS
     Dosage: INITIATED ^YEARS^ AGO
     Route: 048
     Dates: end: 20100203
  4. DIPENTUM [Concomitant]
     Active Substance: OLSALAZINE SODIUM
     Route: 048
     Dates: start: 20051129, end: 20100208
  5. NAPROSYN [Concomitant]
     Active Substance: NAPROXEN
     Dosage: 5 TO 10 TABLETS
     Route: 065
  6. REMICADE [Suspect]
     Active Substance: INFLIXIMAB
     Indication: COLITIS ULCERATIVE
     Route: 042
     Dates: start: 20091204
  7. PENTASA [Concomitant]
     Active Substance: MESALAMINE
  8. SALAZOPYRIN [Concomitant]
     Active Substance: SULFASALAZINE
     Indication: COLITIS ULCERATIVE
     Dosage: INITIATED ^YEARS^ AGO
     Route: 048
     Dates: end: 20100203
  9. VITAMIN B+C [Concomitant]
  10. RENNIE [Concomitant]
     Active Substance: MAGNESIUM CARBONATE
     Route: 065
  11. 5-ASA [Concomitant]
     Active Substance: MESALAMINE

REACTIONS (3)
  - Encephalopathy [Recovered/Resolved with Sequelae]
  - Liver transplant rejection [Recovered/Resolved with Sequelae]
  - Acute hepatic failure [Unknown]

NARRATIVE: CASE EVENT DATE: 2010
